FAERS Safety Report 8145924 (Version 3)
Quarter: 2014Q4

REPORT INFORMATION
  Report Type: Report from Study
  Country: JP (occurrence: JP)
  Receive Date: 20110921
  Receipt Date: 20141114
  Transmission Date: 20150529
  Serious: Yes (Death)
  Sender: FDA-Public Use
  Company Number: PHHY2011JP52263

PATIENT
  Age: 81 Year
  Sex: Male
  Weight: 55 kg

DRUGS (7)
  1. ICL670A [Suspect]
     Active Substance: DEFERASIROX
     Dosage: 1000 MG, DAILY
     Route: 048
     Dates: start: 20090930, end: 20091013
  2. ICL670A [Suspect]
     Active Substance: DEFERASIROX
     Dosage: 500 MG, DAILY
     Route: 048
     Dates: start: 20091221, end: 20100103
  3. ICL670A [Suspect]
     Active Substance: DEFERASIROX
     Dosage: 500 MG, DAILY
     Route: 048
     Dates: start: 20091201, end: 20091214
  4. ICL670A [Suspect]
     Active Substance: DEFERASIROX
     Dosage: 500 MG, DAILY
     Route: 048
     Dates: start: 20100202, end: 20100223
  5. ICL670A [Suspect]
     Active Substance: DEFERASIROX
     Indication: MYELODYSPLASTIC SYNDROME
     Dosage: 1000 MG, DAILY
     Route: 048
     Dates: start: 20090909, end: 20090915
  6. ICL670A [Suspect]
     Active Substance: DEFERASIROX
     Dosage: 1000 MG, DAILY
     Route: 048
     Dates: start: 20091021, end: 20091103
  7. ICL670A [Suspect]
     Active Substance: DEFERASIROX
     Dosage: 500 MG, DAILY
     Route: 048
     Dates: start: 20091111, end: 20091124

REACTIONS (7)
  - Pneumonia bacterial [Fatal]
  - Blood alkaline phosphatase increased [Recovered/Resolved]
  - Blood creatinine increased [Recovering/Resolving]
  - Alanine aminotransferase increased [Recovered/Resolved]
  - Aspartate aminotransferase increased [Recovering/Resolving]
  - Pulmonary haemorrhage [Fatal]
  - Respiratory failure [Fatal]

NARRATIVE: CASE EVENT DATE: 20091020
